FAERS Safety Report 15774480 (Version 6)
Quarter: 2019Q1

REPORT INFORMATION
  Report Type: Spontaneous
  Country: CN (occurrence: CN)
  Receive Date: 20181229
  Receipt Date: 20190115
  Transmission Date: 20190417
  Serious: Yes (Life-Threatening, Hospitalization)
  Sender: FDA-Public Use
  Company Number: PHHY2018CN196380

PATIENT
  Age: 27 Year
  Sex: Female

DRUGS (2)
  1. CICLOSPORIN [Suspect]
     Active Substance: CYCLOSPORINE
     Indication: PANCYTOPENIA
     Dosage: UNK
     Route: 065
  2. DEXAMETHASONE. [Suspect]
     Active Substance: DEXAMETHASONE
     Indication: IMMATURE RESPIRATORY SYSTEM
     Route: 065

REACTIONS (15)
  - Palpitations [Recovering/Resolving]
  - Sputum discoloured [Recovering/Resolving]
  - Chest discomfort [Recovering/Resolving]
  - Pulmonary congestion [Recovering/Resolving]
  - Cough [Recovering/Resolving]
  - Left ventricular failure [Recovering/Resolving]
  - Haemoglobin abnormal [Recovering/Resolving]
  - Gingival bleeding [Recovering/Resolving]
  - Ecchymosis [Unknown]
  - Dyspnoea [Recovering/Resolving]
  - Platelet count abnormal [Recovering/Resolving]
  - Vaginal haemorrhage [Recovering/Resolving]
  - Premature delivery [Unknown]
  - Maternal exposure during pregnancy [Unknown]
  - Red blood cell count abnormal [Recovering/Resolving]
